FAERS Safety Report 19779101 (Version 5)
Quarter: 2021Q4

REPORT INFORMATION
  Report Type: Spontaneous
  Country: US (occurrence: US)
  Receive Date: 20210902
  Receipt Date: 20211006
  Transmission Date: 20220303
  Serious: Yes (Hospitalization)
  Sender: FDA-Public Use
  Company Number: US-UNITED THERAPEUTICS-UNT-2021-015878

PATIENT
  Age: 73 Year
  Sex: Male
  Weight: 78.01 kg

DRUGS (4)
  1. TYVASO [Suspect]
     Active Substance: TREPROSTINIL
     Indication: Pulmonary arterial hypertension
     Dosage: UNK
     Dates: start: 20190531
  2. TYVASO [Suspect]
     Active Substance: TREPROSTINIL
     Dosage: 18-54 ?G, QID
  3. VELETRI [Suspect]
     Active Substance: EPOPROSTENOL
     Indication: Pulmonary hypertension
     Dosage: 23040 NG/KG (16 NG/KG,1 IN 1 MIN)
     Route: 042
     Dates: end: 20210915
  4. SILDENAFIL CITRATE [Concomitant]
     Active Substance: SILDENAFIL CITRATE
     Indication: Product used for unknown indication
     Dosage: UNK
     Route: 065

REACTIONS (6)
  - Device leakage [Unknown]
  - Device physical property issue [Unknown]
  - Dizziness [Unknown]
  - Hypotension [Unknown]
  - Oxygen saturation decreased [Unknown]
  - Device kink [Unknown]

NARRATIVE: CASE EVENT DATE: 20210901
